FAERS Safety Report 12171715 (Version 2)
Quarter: 2016Q1

REPORT INFORMATION
  Report Type: Spontaneous
  Country: GB (occurrence: GB)
  Receive Date: 20160311
  Receipt Date: 20160325
  Transmission Date: 20160526
  Serious: Yes (Other)
  Sender: FDA-Public Use
  Company Number: GB-TEVA-642327ISR

PATIENT
  Age: 47 Year
  Sex: Male

DRUGS (11)
  1. RITUXIMAB [Concomitant]
     Active Substance: RITUXIMAB
     Indication: DERMATITIS ATOPIC
     Dates: start: 201208
  2. TACROLIMUS. [Concomitant]
     Active Substance: TACROLIMUS
     Indication: DERMATITIS ATOPIC
  3. AZATHIOPRINE. [Suspect]
     Active Substance: AZATHIOPRINE
  4. CICLOSPORIN [Suspect]
     Active Substance: CYCLOSPORINE
     Indication: DERMATITIS ATOPIC
  5. METHOTREXATE [Suspect]
     Active Substance: METHOTREXATE
  6. PREDNISOLONE. [Suspect]
     Active Substance: PREDNISOLONE
     Indication: DERMATITIS ATOPIC
  7. RITUXIMAB [Concomitant]
     Active Substance: RITUXIMAB
     Dosage: GIVEN 2 WEEKS APART
     Dates: start: 201305
  8. PREDNISOLONE. [Suspect]
     Active Substance: PREDNISOLONE
     Indication: DERMATITIS ATOPIC
  9. FUMARIC ACID [Concomitant]
     Active Substance: FUMARIC ACID
     Indication: DERMATITIS ATOPIC
  10. PREDNISOLONE. [Suspect]
     Active Substance: PREDNISOLONE
     Indication: DERMATITIS ATOPIC
     Dosage: 20-25 MG
  11. MYCOPHENOLATE MOFETIL. [Concomitant]
     Active Substance: MYCOPHENOLATE MOFETIL
     Indication: DERMATITIS ATOPIC

REACTIONS (2)
  - Cushingoid [Unknown]
  - Skin infection [Unknown]
